FAERS Safety Report 8433868 (Version 8)
Quarter: 2013Q3

REPORT INFORMATION
  Report Type: Report from Study
  Country: US (occurrence: US)
  Receive Date: 20120229
  Receipt Date: 20130710
  Transmission Date: 20140515
  Serious: Yes (Other)
  Sender: FDA-Public Use
  Company Number: US-PFIZER INC-2012047466

PATIENT
  Age: 45 Year
  Sex: Female
  Weight: 74.8 kg

DRUGS (15)
  1. CRIZOTINIB [Suspect]
     Indication: NON-SMALL CELL LUNG CANCER
     Dosage: 250 MG, 2X/DAY
     Route: 048
     Dates: start: 20110708
  2. ALPRAZOLAM [Concomitant]
     Indication: ANXIETY
     Dosage: UNK
     Dates: start: 20110331
  3. ASTEPRO [Concomitant]
     Indication: MULTIPLE ALLERGIES
     Dosage: UNK
     Dates: start: 20110331
  4. BACLOFEN [Concomitant]
     Indication: TREMOR
     Dosage: UNK
     Dates: start: 20110908
  5. CLOBETASOL PROPIONATE [Concomitant]
     Indication: SWELLING
     Dosage: UNK
     Dates: start: 20110630
  6. COUMADINE [Concomitant]
     Indication: PULMONARY EMBOLISM
     Dosage: UNK
     Dates: start: 20110331
  7. FLUOXETINE [Concomitant]
     Indication: ANXIETY
     Dosage: UNK
     Dates: start: 20110331
  8. FUROSEMIDE [Concomitant]
     Indication: OEDEMA
     Dosage: UNK
     Dates: start: 20110830
  9. OXYCODONE [Concomitant]
     Indication: PAIN
     Dosage: UNK
     Dates: start: 20110707
  10. OXYCONTIN [Concomitant]
     Indication: PAIN
     Dosage: UNK
     Dates: start: 20110707
  11. PANTOPRAZOLE SODIUM [Concomitant]
     Indication: DYSPEPSIA
     Dosage: UNK
     Dates: start: 20110630
  12. POTASSIUM CHLORIDE [Concomitant]
     Indication: OEDEMA
     Dosage: UNK
     Dates: start: 20110830
  13. PRO-AIR [Concomitant]
     Indication: DYSPNOEA
     Dosage: UNK
     Dates: start: 20111020
  14. SPIRIVA [Concomitant]
     Indication: DYSPNOEA
     Dosage: UNK
     Dates: start: 20111020
  15. ZANTAC [Concomitant]
     Indication: DYSPEPSIA
     Dosage: UNK
     Dates: start: 20110331

REACTIONS (2)
  - Second primary malignancy [Recovered/Resolved]
  - Squamous cell carcinoma of skin [Recovered/Resolved]
